FAERS Safety Report 20982152 (Version 2)
Quarter: 2022Q2

REPORT INFORMATION
  Report Type: Report from Study
  Country: US (occurrence: US)
  Receive Date: 20220620
  Receipt Date: 20220630
  Transmission Date: 20220721
  Serious: Yes (Other)
  Sender: FDA-Public Use
  Company Number: US-BAYER-2022A069990

PATIENT
  Age: 87 Year
  Sex: Male
  Weight: 72.562 kg

DRUGS (5)
  1. ADEMPAS [Suspect]
     Active Substance: RIOCIGUAT
     Indication: Pulmonary arterial hypertension
     Dosage: UNK
     Dates: start: 20210908
  2. ADEMPAS [Suspect]
     Active Substance: RIOCIGUAT
     Indication: Pulmonary arterial hypertension
     Dosage: 2.5 MG, TID
     Route: 048
  3. ADEMPAS [Suspect]
     Active Substance: RIOCIGUAT
     Indication: Pulmonary arterial hypertension
     Dosage: 2.5 MG, TID
     Route: 048
  4. TYVASO [Concomitant]
     Active Substance: TREPROSTINIL
     Dosage: UNK
  5. DICLOXACILLIN [Concomitant]
     Active Substance: DICLOXACILLIN

REACTIONS (9)
  - Fall [None]
  - Deafness [None]
  - Insomnia [None]
  - Dizziness [None]
  - Feeling abnormal [None]
  - Dyspnoea [None]
  - Hypoacusis [None]
  - Adverse drug reaction [None]
  - Adverse drug reaction [None]
